FAERS Safety Report 24773876 (Version 4)
Quarter: 2025Q3

REPORT INFORMATION
  Report Type: Report from Study
  Country: EU (occurrence: EU)
  Receive Date: 20241225
  Receipt Date: 20250803
  Transmission Date: 20251021
  Serious: Yes (Hospitalization, Other)
  Sender: ALEXION PHARMACEUTICALS
  Company Number: EU-SA-2024SA373507

PATIENT

DRUGS (2)
  1. NIRSEVIMAB [Suspect]
     Active Substance: NIRSEVIMAB
     Dates: start: 2023, end: 2023
  2. NIRSEVIMAB [Suspect]
     Active Substance: NIRSEVIMAB
     Dates: start: 2024, end: 2024

REACTIONS (2)
  - Neonatal hypoxia [Unknown]
  - Hypotonia neonatal [Unknown]

NARRATIVE: CASE EVENT DATE: 20240101
